FAERS Safety Report 10711254 (Version 2)
Quarter: 2016Q2

REPORT INFORMATION
  Report Type: Spontaneous
  Country: US (occurrence: US)
  Receive Date: 20150114
  Receipt Date: 20160513
  Transmission Date: 20160815
  Serious: Yes (Other)
  Sender: FDA-Public Use
  Company Number: US-PFIZER INC-2015014960

PATIENT
  Age: 62 Year
  Sex: Female
  Weight: 86 kg

DRUGS (16)
  1. LASIX [Concomitant]
     Active Substance: FUROSEMIDE
     Indication: SWELLING
     Dosage: 20 MG, AS NEEDED
  2. PULMICORT TURBUHALER [Concomitant]
     Active Substance: BUDESONIDE
     Indication: ASTHMA
     Dosage: 18UG, 2 PUFF EVERY DAY
  3. CELEBREX [Suspect]
     Active Substance: CELECOXIB
     Indication: ARTHRITIS
     Dosage: 200 MG, 1X/DAY
     Route: 048
     Dates: end: 201404
  4. NEXIUM [Concomitant]
     Active Substance: ESOMEPRAZOLE MAGNESIUM
     Indication: RESPIRATORY THERAPY
     Dosage: 40 MG, 1X/DAY
     Route: 048
  5. CELEBREX [Suspect]
     Active Substance: CELECOXIB
     Indication: ARTHRALGIA
     Dosage: 100 MG, UNK
  6. CENTRUM SILVER [Concomitant]
     Active Substance: MINERALS\VITAMINS
     Dosage: 1X/DAY
  7. BUDESONIDE. [Concomitant]
     Active Substance: BUDESONIDE
     Indication: DYSPNOEA
     Dosage: FOUR TO SIX HOURS AS NEEDED
  8. TRIAMCINOLONE ACETONIDE. [Concomitant]
     Active Substance: TRIAMCINOLONE ACETONIDE
     Indication: RASH
     Dosage: 1%, AS NEEDED
     Route: 061
  9. DIFLORASONE DIACETATE. [Concomitant]
     Active Substance: DIFLORASONE DIACETATE
     Dosage: 0.05%, AS NEEDED
     Route: 061
  10. CLARITIN [Concomitant]
     Active Substance: LORATADINE
     Indication: SEASONAL ALLERGY
     Dosage: 10 MG, 1X/DAY
  11. CELEBREX [Suspect]
     Active Substance: CELECOXIB
     Dosage: 200 MG, 1X/DAY
     Route: 048
     Dates: end: 201510
  12. LEVOSALBUTAMOL [Concomitant]
     Active Substance: LEVALBUTEROL
     Indication: DYSPNOEA
     Dosage: EVERY FOUR TO SIX HOURS AS NEEDED
  13. MONTELUKAST [Concomitant]
     Active Substance: MONTELUKAST SODIUM
     Indication: HYPERSENSITIVITY
     Dosage: 10 MG, 1X/DAY
     Route: 048
  14. MONTELUKAST [Concomitant]
     Active Substance: MONTELUKAST SODIUM
     Indication: ASTHMA
  15. PULMICORT TURBUHALER [Concomitant]
     Active Substance: BUDESONIDE
     Dosage: 180 UG, 2X/DAY
     Route: 055
  16. SINGULAIR [Concomitant]
     Active Substance: MONTELUKAST SODIUM
     Indication: SEASONAL ALLERGY
     Dosage: 10 MG, 1X/DAY

REACTIONS (2)
  - Drug ineffective [Unknown]
  - Arthropathy [Unknown]

NARRATIVE: CASE EVENT DATE: 2008
